FAERS Safety Report 12174302 (Version 1)
Quarter: 2016Q1

REPORT INFORMATION
  Report Type: Not Available
  Country: US (occurrence: US)
  Receive Date: 20160313
  Receipt Date: 20160313
  Transmission Date: 20160526
  Serious: Yes (Hospitalization)
  Sender: FDA-Public Use
  Company Number: US-ANIPHARMA-2016-US-001177

PATIENT
  Age: 39 Year
  Sex: Female

DRUGS (5)
  1. LACOSAMIDE [Concomitant]
     Active Substance: LACOSAMIDE
  2. OLANZAPINE. [Concomitant]
     Active Substance: OLANZAPINE
  3. LEVETIRACETAM. [Concomitant]
     Active Substance: LEVETIRACETAM
  4. PHENYTOIN SODIUM (NON-SPECIFIC) [Concomitant]
     Active Substance: PHENYTOIN SODIUM
  5. VALPROIC ACID (NON-SPECIFIC) [Suspect]
     Active Substance: VALPROIC ACID

REACTIONS (3)
  - Acute hepatic failure [Unknown]
  - Respiratory failure [Unknown]
  - Acute kidney injury [Unknown]
